FAERS Safety Report 10554982 (Version 2)
Quarter: 2014Q4

REPORT INFORMATION
  Report Type: Spontaneous
  Country: US (occurrence: US)
  Receive Date: 20141030
  Receipt Date: 20141117
  Transmission Date: 20150529
  Serious: Yes (Other)
  Sender: FDA-Public Use
  Company Number: US-PFIZER INC-2014296428

PATIENT
  Age: 78 Year
  Sex: Female
  Weight: 56.69 kg

DRUGS (1)
  1. XALATAN [Suspect]
     Active Substance: LATANOPROST
     Indication: GLAUCOMA
     Dosage: UNK

REACTIONS (3)
  - Clumsiness [Unknown]
  - Fall [Unknown]
  - Lower limb fracture [Unknown]
